FAERS Safety Report 14479434 (Version 1)
Quarter: 2018Q1

REPORT INFORMATION
  Report Type: Spontaneous
  Country: US (occurrence: US)
  Receive Date: 20180201
  Receipt Date: 20180201
  Transmission Date: 20180509
  Serious: Yes (Hospitalization)
  Sender: FDA-Public Use
  Company Number: None

PATIENT
  Age: 80 Year
  Sex: Female

DRUGS (1)
  1. SPRYCEL [Suspect]
     Active Substance: DASATINIB
     Route: 048

REACTIONS (4)
  - Pulmonary oedema [None]
  - Peripheral swelling [None]
  - Dyspnoea [None]
  - Joint swelling [None]

NARRATIVE: CASE EVENT DATE: 20180106
